FAERS Safety Report 7973122-6 (Version None)
Quarter: 2011Q4

REPORT INFORMATION
  Report Type: 
  Country: None (occurrence: None)
  Receive Date: 20111213
  Receipt Date: 20111205
  Transmission Date: 20120403
  Serious: Yes (Other)
  Sender: FDA-Public Use
  Company Number: JP-ASTELLAS-2011JP009045

PATIENT
  Age: 17 Year
  Sex: Male

DRUGS (7)
  1. PROGRAF [Suspect]
     Route: 048
  2. METHOTREXATE [Concomitant]
     Indication: PROPHYLAXIS AGAINST GRAFT VERSUS HOST DISEASE
     Route: 065
  3. FLUDARABINE PHOSPHATE [Concomitant]
     Route: 065
  4. ANTI-THYMOCYTE GLOBULIN NOS [Concomitant]
     Route: 065
  5. MELPHALAN HYDROCHLORIDE [Concomitant]
     Route: 065
  6. PREDNISOLONE [Concomitant]
     Indication: PROPHYLAXIS AGAINST GRAFT VERSUS HOST DISEASE
     Route: 065
  7. PROGRAF [Suspect]
     Indication: PROPHYLAXIS AGAINST GRAFT VERSUS HOST DISEASE

REACTIONS (2)
  - ACUTE GRAFT VERSUS HOST DISEASE [None]
  - DRUG INEFFECTIVE [None]
